FAERS Safety Report 4657968-8 (Version None)
Quarter: 2005Q2

REPORT INFORMATION
  Report Type: 
  Country: None (occurrence: None)
  Receive Date: 20050510
  Receipt Date: 20050502
  Transmission Date: 20051028
  Serious: Yes (Other)
  Sender: FDA-Public Use
  Company Number: PHNR2005AU00831

PATIENT
  Age: 88 Year
  Sex: Female

DRUGS (4)
  1. MELPHALAN [Concomitant]
     Dosage: 10 MG, QD
  2. PREDNISOLONE [Concomitant]
     Dosage: 100 MG, QD
  3. DEXTROSE W/SODIUM CHLORIDE [Concomitant]
     Route: 042
  4. ZOLEDRONIC ACID [Suspect]
     Indication: MULTIPLE MYELOMA
     Dosage: 4 MG, UNK

REACTIONS (9)
  - BLOOD 25-HYDROXYCHOLECALCIFEROL DECREASED [None]
  - BLOOD PARATHYROID HORMONE INCREASED [None]
  - CALCIUM IONISED DECREASED [None]
  - CREATININE RENAL CLEARANCE DECREASED [None]
  - DUODENAL OPERATION [None]
  - DUODENAL ULCER [None]
  - HYPOCALCAEMIA [None]
  - HYPOPHOSPHATAEMIA [None]
  - RENAL IMPAIRMENT [None]
